FAERS Safety Report 8531325-6 (Version None)
Quarter: 2012Q3

REPORT INFORMATION
  Report Type: 
  Country: None (occurrence: None)
  Receive Date: 20120710
  Receipt Date: 20120628
  Transmission Date: 20120928
  Serious: Yes (Other)
  Sender: FDA-Public Use
  Company Number: 2012MA008008

PATIENT
  Age: 69 Year
  Sex: Male

DRUGS (5)
  1. LOVASTATIN [Suspect]
     Indication: PRODUCT USED FOR UNKNOWN INDICATION
     Dosage: 10 MG
  2. AMLODIPINE [Concomitant]
  3. LEVOTHYROXINE SODIUM [Concomitant]
  4. METFORMIN HYDROCHLORIDE [Concomitant]
  5. ALLOPURINOL [Concomitant]

REACTIONS (1)
  - LOSS OF CONSCIOUSNESS [None]
